FAERS Safety Report 14665130 (Version 1)
Quarter: 2018Q1

REPORT INFORMATION
  Report Type: Spontaneous
  Country: US (occurrence: US)
  Receive Date: 20180319
  Receipt Date: 20180319
  Transmission Date: 20180509
  Serious: No
  Sender: FDA-Public Use
  Company Number: None

PATIENT
  Age: 35 Year
  Sex: Female
  Weight: 65.25 kg

DRUGS (4)
  1. MAGNESIUM [Concomitant]
     Active Substance: MAGNESIUM
  2. ADDERALL [Concomitant]
     Active Substance: AMPHETAMINE ASPARTATE\AMPHETAMINE SULFATE\DEXTROAMPHETAMINE SACCHARATE\DEXTROAMPHETAMINE SULFATE
  3. XANAX [Concomitant]
     Active Substance: ALPRAZOLAM
  4. NUVARING [Suspect]
     Active Substance: ETHINYL ESTRADIOL\ETONOGESTREL
     Indication: CONTRACEPTION
     Dosage: QUANTITY:1 RING;OTHER FREQUENCY:ONE EVERY 3 WEEKS;?
     Route: 067
     Dates: start: 20180308, end: 20180316

REACTIONS (6)
  - Drug interaction [None]
  - Dysuria [None]
  - Cervix inflammation [None]
  - Vaginal discharge [None]
  - Vulvovaginal discomfort [None]
  - Pain [None]

NARRATIVE: CASE EVENT DATE: 20180311
